FAERS Safety Report 18463267 (Version 4)
Quarter: 2022Q2

REPORT INFORMATION
  Report Type: Spontaneous
  Country: US (occurrence: US)
  Receive Date: 20201104
  Receipt Date: 20220513
  Transmission Date: 20220721
  Serious: No
  Sender: FDA-Public Use
  Company Number: US-PFIZER INC-2020425680

PATIENT
  Age: 60 Year
  Sex: Female
  Weight: 62.14 kg

DRUGS (2)
  1. DUAVEE [Suspect]
     Active Substance: BAZEDOXIFENE ACETATE\ESTROGENS, CONJUGATED
     Indication: Hot flush
     Dosage: UNK, 1X/DAY
     Route: 048
     Dates: start: 2017
  2. DUAVEE [Suspect]
     Active Substance: BAZEDOXIFENE ACETATE\ESTROGENS, CONJUGATED
     Indication: Irritability

REACTIONS (4)
  - Alopecia [Unknown]
  - Sleep disorder [Unknown]
  - Product supply issue [Unknown]
  - Product dose omission issue [Unknown]
